FAERS Safety Report 17610659 (Version 1)
Quarter: 2020Q2

REPORT INFORMATION
  Report Type: Spontaneous
  Country: US (occurrence: US)
  Receive Date: 20200401
  Receipt Date: 20200401
  Transmission Date: 20200713
  Serious: No
  Sender: FDA-Public Use
  Company Number: None

PATIENT
  Age: 66 Year
  Sex: Male
  Weight: 81 kg

DRUGS (1)
  1. TRIAZOLAM.25MG [Suspect]
     Active Substance: TRIAZOLAM
     Indication: PRODUCT USED FOR UNKNOWN INDICATION
     Dosage: ?          QUANTITY:0.5 TABLET(S);?
     Route: 060

REACTIONS (4)
  - Abnormal dreams [None]
  - Therapeutic response changed [None]
  - Therapeutic response unexpected [None]
  - Product formulation issue [None]
